FAERS Safety Report 4355994-X (Version None)
Quarter: 2004Q2

REPORT INFORMATION
  Report Type: 
  Country: None (occurrence: None)
  Receive Date: 20040511
  Receipt Date: 20031121
  Transmission Date: 20050107
  Serious: Yes (Hospitalization)
  Sender: FDA-Public Use
  Company Number: SE-AMGEN-UK058121

PATIENT
  Sex: Male
  Weight: 70 kg

DRUGS (3)
  1. ARANESP [Suspect]
     Indication: ANAEMIA OF MALIGNANT DISEASE
     Route: 058
     Dates: start: 20030923, end: 20031028
  2. VENOFER [Suspect]
  3. GEMCITABINE [Concomitant]

REACTIONS (1)
  - HAEMOGLOBIN INCREASED [None]
